FAERS Safety Report 22043153 (Version 3)
Quarter: 2023Q2

REPORT INFORMATION
  Report Type: Report from Study
  Country: EG (occurrence: EG)
  Receive Date: 20230228
  Receipt Date: 20230424
  Transmission Date: 20230722
  Serious: Yes (Other)
  Sender: FDA-Public Use
  Company Number: EG-002147023-NVSC2023EG041472

PATIENT
  Age: 48 Year
  Sex: Female

DRUGS (2)
  1. TASIGNA [Suspect]
     Active Substance: NILOTINIB
     Indication: Chronic myeloid leukaemia
     Dosage: 600 MG, QD (3 CAPS/DAY FROM TASIGNA 200 MG OR 4 CAPS\DAY FROM TASIGNA 150 MG)
     Route: 048
     Dates: start: 202104
  2. TASIGNA [Suspect]
     Active Substance: NILOTINIB
     Dosage: 4 DOSAGE FORM (4 CAPSULES FROM TASIGNA 150 MG)
     Route: 048

REACTIONS (13)
  - Splenomegaly [Recovering/Resolving]
  - Thyroid pain [Recovering/Resolving]
  - Goitre [Not Recovered/Not Resolved]
  - Sleep disorder [Not Recovered/Not Resolved]
  - Hypothyroidism [Recovering/Resolving]
  - Platelet count decreased [Unknown]
  - Weight fluctuation [Recovering/Resolving]
  - Abdominal distension [Not Recovered/Not Resolved]
  - Abdominal pain upper [Not Recovered/Not Resolved]
  - Weight increased [Not Recovered/Not Resolved]
  - Dyspnoea exertional [Not Recovered/Not Resolved]
  - Dysphagia [Not Recovered/Not Resolved]
  - Product dispensing issue [Recovered/Resolved]

NARRATIVE: CASE EVENT DATE: 20221001
